FAERS Safety Report 17139257 (Version 1)
Quarter: 2019Q4

REPORT INFORMATION
  Report Type: Spontaneous
  Country: US (occurrence: US)
  Receive Date: 20191210
  Receipt Date: 20191210
  Transmission Date: 20200122
  Serious: No
  Sender: FDA-Public Use
  Company Number: None

PATIENT
  Age: 50 Year
  Sex: Female

DRUGS (1)
  1. AXICABTAGENE CILOLEUCEL [Suspect]
     Active Substance: AXICABTAGENE CILOLEUCEL

REACTIONS (11)
  - Neurotoxicity [None]
  - Febrile neutropenia [None]
  - Vision blurred [None]
  - Transaminases abnormal [None]
  - Confusional state [None]
  - Lymphocyte adoptive therapy [None]
  - Cytokine release syndrome [None]
  - Pleural effusion [None]
  - Cholelithiasis [None]
  - Tremor [None]
  - Productive cough [None]

NARRATIVE: CASE EVENT DATE: 20190830
